FAERS Safety Report 4967323-9 (Version None)
Quarter: 2006Q2

REPORT INFORMATION
  Report Type: 
  Country: None (occurrence: None)
  Receive Date: 20060410
  Receipt Date: 20060330
  Transmission Date: 20061013
  Serious: Yes (Hospitalization)
  Sender: FDA-Public Use
  Company Number: US-JNJFOC-20060400356

PATIENT
  Sex: Male
  Weight: 90.72 kg

DRUGS (10)
  1. FENTANYL [Suspect]
     Route: 062
  2. TOPROL-XL [Concomitant]
     Route: 048
  3. NORVASC [Concomitant]
     Indication: DRUG USE FOR UNKNOWN INDICATION
     Route: 048
  4. ISOSORBIDE MONONITRATE [Concomitant]
     Route: 048
  5. LASIX [Concomitant]
     Indication: DIURETIC THERAPY
     Route: 048
  6. PRINIVIL [Concomitant]
     Route: 048
  7. ZOCOR [Concomitant]
     Route: 048
  8. PRILOSEC [Concomitant]
     Route: 048
  9. FOLIC ACID [Concomitant]
     Route: 048
  10. ATIVAN [Concomitant]
     Indication: ANXIETY
     Route: 048

REACTIONS (7)
  - BODY TEMPERATURE INCREASED [None]
  - DIZZINESS [None]
  - HYPERHIDROSIS [None]
  - MALAISE [None]
  - NAUSEA [None]
  - SOMNOLENCE [None]
  - THERAPEUTIC RESPONSE DECREASED [None]
